FAERS Safety Report 7403970-2 (Version None)
Quarter: 2011Q2

REPORT INFORMATION
  Report Type: 
  Country: None (occurrence: None)
  Receive Date: 20110408
  Receipt Date: 20110328
  Transmission Date: 20111010
  Serious: Yes (Hospitalization)
  Sender: FDA-Public Use
  Company Number: US-BRISTOL-MYERS SQUIBB COMPANY-15007818

PATIENT
  Age: 80 Year
  Sex: Female

DRUGS (7)
  1. SPIRONOLACTONE [Concomitant]
     Route: 048
  2. ZETIA [Concomitant]
  3. METOPROLOL [Concomitant]
  4. DILTIAZEM HCL [Concomitant]
  5. SYNTHROID [Concomitant]
  6. ONGLYZA [Suspect]
     Indication: DIABETES MELLITUS
     Dates: start: 20100225
  7. DIGOXIN [Concomitant]

REACTIONS (1)
  - PANCREATITIS [None]
